FAERS Safety Report 5693197-7 (Version None)
Quarter: 2008Q2

REPORT INFORMATION
  Report Type: 
  Country: None (occurrence: None)
  Receive Date: 20080403
  Receipt Date: 20080324
  Transmission Date: 20081010
  Serious: Yes (Disabling)
  Sender: FDA-Public Use
  Company Number: US-TYCO HEALTHCARE/MALLINCKRODT-T200800548

PATIENT

DRUGS (3)
  1. OPTIMARK [Suspect]
     Indication: NUCLEAR MAGNETIC RESONANCE IMAGING
     Route: 042
     Dates: start: 20060727, end: 20060727
  2. OPTIMARK [Suspect]
     Route: 042
     Dates: start: 20060731, end: 20060731
  3. MAGNEVIST [Suspect]
     Indication: NUCLEAR MAGNETIC RESONANCE IMAGING
     Dates: start: 20050527, end: 20050527

REACTIONS (1)
  - NEPHROGENIC SYSTEMIC FIBROSIS [None]
